FAERS Safety Report 8209076 (Version 2)
Quarter: 2012Q4

REPORT INFORMATION
  Report Type: 
  Country: US (occurrence: US)
  Receive Date: 20111028
  Receipt Date: 20121023
  Transmission Date: 20130627
  Serious: No
  Sender: FDA-Public Use
  Company Number: US-AMGEN-USASP2010007938

PATIENT
  Age: 68 Year
  Sex: Female
  Weight: 120.18 kg

DRUGS (10)
  1. ENBREL [Suspect]
     Indication: PSORIATIC ARTHROPATHY
     Dosage: 50 mg, qwk
     Route: 058
     Dates: start: 20091023
  2. ENBREL [Suspect]
     Indication: PRODUCT USED FOR UNKNOWN INDICATION
  3. INSULIN [Concomitant]
     Dosage: UNK
  4. LYRICA [Concomitant]
     Dosage: 50 mg, UNK
  5. PREDNISONE [Concomitant]
     Dosage: 5 mg, UNK
  6. PLAVIX                             /01220701/ [Concomitant]
     Dosage: UNK
  7. ESTRADIOL [Concomitant]
     Dosage: UNK
  8. CELLCEPT [Concomitant]
     Dosage: UNK
  9. AVAPRO [Concomitant]
     Dosage: UNK
  10. PROTONIX                           /01263201/ [Concomitant]
     Dosage: UNK

REACTIONS (5)
  - Constipation [Not Recovered/Not Resolved]
  - Faecaloma [Recovered/Resolved]
  - Gastrointestinal pain [Recovered/Resolved]
  - Muscle spasms [Recovered/Resolved]
  - Nausea [Recovered/Resolved]
